FAERS Safety Report 14142219 (Version 1)
Quarter: 2017Q4

REPORT INFORMATION
  Report Type: Spontaneous
  Country: FR (occurrence: FR)
  Receive Date: 20171030
  Receipt Date: 20171030
  Transmission Date: 20180321
  Serious: Yes (Hospitalization)
  Sender: FDA-Public Use
  Company Number: FR-EMD SERONO-8196832

PATIENT
  Sex: Female

DRUGS (2)
  1. DECAPEPTYL                         /00486501/ [Concomitant]
     Active Substance: GONADORELIN
     Indication: IN VITRO FERTILISATION
     Dates: start: 201709
  2. OVITRELLE [Suspect]
     Active Substance: CHORIOGONADOTROPIN ALFA
     Indication: IN VITRO FERTILISATION
     Dosage: 25 CLICKS
     Dates: start: 201709

REACTIONS (5)
  - Ascites [Unknown]
  - Hypotension [Recovering/Resolving]
  - Pain [Unknown]
  - Overdose [Unknown]
  - Oedema [Unknown]

NARRATIVE: CASE EVENT DATE: 2017
